FAERS Safety Report 5062939-6 (Version None)
Quarter: 2006Q3

REPORT INFORMATION
  Report Type: 
  Country: None (occurrence: None)
  Receive Date: 20060724
  Receipt Date: 20060714
  Transmission Date: 20061208
  Serious: Yes (Other)
  Sender: FDA-Public Use
  Company Number: 2006-07-0703

PATIENT
  Age: 58 Year
  Sex: Female

DRUGS (1)
  1. BETAMETHASONE SODIUM PHOSPHATE [Suspect]
     Dosage: 2 MG INTRAVENOUS
     Route: 042

REACTIONS (6)
  - BRONCHOSPASM [None]
  - ERYTHEMA [None]
  - HYPOTENSION [None]
  - PROCEDURAL COMPLICATION [None]
  - SKIN TEST POSITIVE [None]
  - TYPE I HYPERSENSITIVITY [None]
